FAERS Safety Report 16036324 (Version 1)
Quarter: 2019Q1

REPORT INFORMATION
  Report Type: Spontaneous
  Country: US (occurrence: US)
  Receive Date: 20190305
  Receipt Date: 20190305
  Transmission Date: 20190418
  Serious: No
  Sender: FDA-Public Use
  Company Number: US-ALLERGAN-1836418US

PATIENT
  Age: 52 Year
  Sex: Female
  Weight: 51.7 kg

DRUGS (3)
  1. ESTRACE [Suspect]
     Active Substance: ESTRADIOL
     Indication: VULVOVAGINAL DRYNESS
     Dosage: 2 G, QD
     Route: 067
     Dates: start: 201805
  2. ESTRACE [Suspect]
     Active Substance: ESTRADIOL
     Dosage: 1 G, UNK
     Route: 067
  3. ESTRACE [Suspect]
     Active Substance: ESTRADIOL
     Indication: HOT FLUSH
     Dosage: 2 G, BI-WEEKLY
     Route: 067

REACTIONS (2)
  - Inappropriate schedule of product administration [Unknown]
  - Alopecia [Not Recovered/Not Resolved]
